FAERS Safety Report 9109408 (Version 2)
Quarter: 2013Q4

REPORT INFORMATION
  Report Type: Spontaneous
  Country: HU (occurrence: HU)
  Receive Date: 20130222
  Receipt Date: 20131114
  Transmission Date: 20140711
  Serious: Yes (Other)
  Sender: FDA-Public Use
  Company Number: HU-UCBSA-078382

PATIENT
  Age: 52 Year
  Sex: Female

DRUGS (3)
  1. CIMZIA [Suspect]
     Indication: RHEUMATOID ARTHRITIS
     Route: 058
     Dates: start: 20120831, end: 20121122
  2. TREXAN [Concomitant]
     Indication: RHEUMATOID ARTHRITIS
     Route: 048
  3. FRAXIPARINE [Concomitant]
     Dosage: UNKNOWN DOSE
     Route: 058

REACTIONS (2)
  - Hepatotoxicity [Recovering/Resolving]
  - Hepatic function abnormal [Recovered/Resolved]
